FAERS Safety Report 19214046 (Version 2)
Quarter: 2022Q2

REPORT INFORMATION
  Report Type: Spontaneous
  Country: US (occurrence: US)
  Receive Date: 20210504
  Receipt Date: 20220414
  Transmission Date: 20220720
  Serious: Yes (Other)
  Sender: FDA-Public Use
  Company Number: US-GLAXOSMITHKLINE-US2021GSK096702

PATIENT
  Sex: Male

DRUGS (4)
  1. RANITIDINE [Suspect]
     Active Substance: RANITIDINE
     Dosage: UNK, WE
     Route: 065
     Dates: start: 200007, end: 200408
  2. RANITIDINE [Suspect]
     Active Substance: RANITIDINE
     Dosage: UNK, WE
     Route: 065
     Dates: start: 200007, end: 200408
  3. RANITIDINE [Suspect]
     Active Substance: RANITIDINE
     Dosage: UNK, WE
     Route: 065
     Dates: start: 200007, end: 200408
  4. RANITIDINE [Suspect]
     Active Substance: RANITIDINE
     Dosage: UNK, WE
     Route: 065
     Dates: start: 200007, end: 200408

REACTIONS (1)
  - Bladder cancer [Unknown]
